FAERS Safety Report 10749439 (Version 1)
Quarter: 2015Q1

REPORT INFORMATION
  Report Type: Report from Study
  Country: US (occurrence: US)
  Receive Date: 20150129
  Receipt Date: 20150129
  Transmission Date: 20150721
  Serious: Yes (Other)
  Sender: FDA-Public Use
  Company Number: PHEH2015US001804

PATIENT
  Age: 48 Year
  Sex: Male

DRUGS (1)
  1. MYFORTIC [Suspect]
     Active Substance: MYCOPHENOLATE SODIUM
     Indication: RENAL TRANSPLANT
     Dosage: 720 MG, BID (4 DF (180 MG), BID
     Route: 048

REACTIONS (5)
  - Kidney transplant rejection [Unknown]
  - Blood creatinine increased [Unknown]
  - Glomerulosclerosis [Unknown]
  - Renal tubular atrophy [Unknown]
  - Kidney fibrosis [Unknown]

NARRATIVE: CASE EVENT DATE: 20140805
